FAERS Safety Report 6193753-6 (Version None)
Quarter: 2009Q2

REPORT INFORMATION
  Report Type: 
  Country: None (occurrence: None)
  Receive Date: 20090518
  Receipt Date: 20090507
  Transmission Date: 20091009
  Serious: Yes (Hospitalization, Other)
  Sender: FDA-Public Use
  Company Number: JP-PFIZER INC-2009211407

PATIENT
  Age: 66 Year

DRUGS (8)
  1. SUNITINIB MALATE [Suspect]
     Indication: RENAL CELL CARCINOMA
     Dosage: 50 MG, 1X/DAY
     Route: 048
     Dates: start: 20081118, end: 20081128
  2. BLOPRESS [Concomitant]
  3. LANIRAPID [Concomitant]
  4. GLIMICRON [Concomitant]
  5. LASIX [Concomitant]
  6. NORVASC [Concomitant]
  7. WARFARIN POTASSIUM [Concomitant]
  8. ALLOPURINOL [Concomitant]

REACTIONS (3)
  - HYPOTHYROIDISM [None]
  - PLATELET COUNT DECREASED [None]
  - RENAL IMPAIRMENT [None]
